FAERS Safety Report 5643071-7 (Version None)
Quarter: 2008Q1

REPORT INFORMATION
  Report Type: 
  Country: None (occurrence: None)
  Receive Date: 20080228
  Receipt Date: 20080225
  Transmission Date: 20080703
  Serious: Yes (Hospitalization, Disabling)
  Sender: FDA-Public Use
  Company Number: US-MERCK-0801USA01653

PATIENT
  Age: 82 Year
  Sex: Female

DRUGS (7)
  1. JANUMET [Suspect]
     Indication: TYPE 2 DIABETES MELLITUS
     Route: 048
     Dates: start: 20071201
  2. ACCUPRIL [Concomitant]
     Route: 065
  3. TRAZODONE HYDROCHLORIDE [Concomitant]
     Route: 065
  4. ISOSORBIDE MONONITRATE [Concomitant]
     Route: 065
  5. ASPIRIN [Concomitant]
     Route: 065
  6. NIACIN [Concomitant]
     Route: 065
  7. XANTHOPHYLL [Concomitant]
     Route: 065

REACTIONS (8)
  - ASTHENIA [None]
  - CHEST PAIN [None]
  - DIARRHOEA [None]
  - DIZZINESS [None]
  - DYSPNOEA [None]
  - GASTRIC DISORDER [None]
  - INCONTINENCE [None]
  - URINARY TRACT INFECTION [None]
